FAERS Safety Report 20364532 (Version 7)
Quarter: 2022Q2

REPORT INFORMATION
  Report Type: Report from Study
  Country: US (occurrence: US)
  Receive Date: 20220122
  Receipt Date: 20220613
  Transmission Date: 20220720
  Serious: Yes (Other)
  Sender: FDA-Public Use
  Company Number: US-NOVARTISTESTPH-NVSC2022US013479

PATIENT
  Sex: Female

DRUGS (3)
  1. PIQRAY [Suspect]
     Active Substance: ALPELISIB
     Indication: Breast cancer
     Dosage: 300 MG, QD
     Route: 048
  2. PIQRAY [Suspect]
     Active Substance: ALPELISIB
     Dosage: 250 MG, QD
     Route: 048
  3. METFORMIN [Suspect]
     Active Substance: METFORMIN HYDROCHLORIDE
     Indication: Diabetes mellitus
     Dosage: UNK
     Route: 065

REACTIONS (29)
  - Myocardial ischaemia [Unknown]
  - Diabetes mellitus [Unknown]
  - Chest pain [Unknown]
  - Palpitations [Unknown]
  - Peripheral swelling [Unknown]
  - Illness [Unknown]
  - Abdominal discomfort [Unknown]
  - Somnolence [Unknown]
  - Visual impairment [Unknown]
  - Strabismus [Unknown]
  - Echocardiogram abnormal [Unknown]
  - Ejection fraction decreased [Unknown]
  - Feeling abnormal [Unknown]
  - Blood insulin increased [Unknown]
  - Faeces discoloured [Unknown]
  - Decreased activity [Unknown]
  - Apathy [Unknown]
  - Head discomfort [Unknown]
  - Vision blurred [Unknown]
  - Malaise [Unknown]
  - Hyperglycaemia [Recovering/Resolving]
  - Headache [Unknown]
  - Nausea [Unknown]
  - Abdominal pain upper [Recovering/Resolving]
  - Diarrhoea [Unknown]
  - Weight decreased [Unknown]
  - Irritability [Unknown]
  - Drug ineffective [Unknown]
  - Glycosylated haemoglobin decreased [Unknown]
